FAERS Safety Report 4988528-7 (Version None)
Quarter: 2006Q2

REPORT INFORMATION
  Report Type: 
  Country: None (occurrence: None)
  Receive Date: 20060426
  Receipt Date: 20060412
  Transmission Date: 20061013
  Serious: Yes (Hospitalization, Other)
  Sender: FDA-Public Use
  Company Number: JP200601003551

PATIENT
  Age: 64 Year
  Sex: Male
  Weight: 52 kg

DRUGS (4)
  1. GEMZAR [Suspect]
     Indication: NON-SMALL CELL LUNG CANCER
     Dosage: 1550 MG, INTRAVENOUS
     Route: 042
     Dates: start: 20051108, end: 20051206
  2. NIFEDIPINE [Concomitant]
  3. LOXOPROFEN SODIUM (LOXOPROFEN SODIUM) [Concomitant]
  4. REBAMIPIDE (REBAMIPIDE) [Concomitant]

REACTIONS (10)
  - CHEST X-RAY ABNORMAL [None]
  - INFECTION [None]
  - METASTASES TO LYMPH NODES [None]
  - NON-SMALL CELL LUNG CANCER RECURRENT [None]
  - PLEURAL EFFUSION [None]
  - PNEUMONIA [None]
  - PNEUMONITIS [None]
  - PULMONARY ALVEOLAR HAEMORRHAGE [None]
  - PULMONARY HAEMORRHAGE [None]
  - RESPIRATORY FAILURE [None]
